FAERS Safety Report 15321499 (Version 1)
Quarter: 2018Q3

REPORT INFORMATION
  Report Type: Spontaneous
  Country: US (occurrence: US)
  Receive Date: 20180827
  Receipt Date: 20180827
  Transmission Date: 20181010
  Serious: No
  Sender: FDA-Public Use
  Company Number: US-ALKERMES INC.-ALK-2018-004434

PATIENT
  Sex: Female

DRUGS (1)
  1. VIVITROL [Suspect]
     Active Substance: NALTREXONE
     Indication: PRODUCT USED FOR UNKNOWN INDICATION
     Dosage: 380 MG, QMO
     Route: 030

REACTIONS (5)
  - Back injury [Not Recovered/Not Resolved]
  - Neck injury [Unknown]
  - Gait disturbance [Not Recovered/Not Resolved]
  - Inadequate analgesia [Unknown]
  - Pain [Unknown]
